FAERS Safety Report 4590936-3 (Version None)
Quarter: 2005Q1

REPORT INFORMATION
  Report Type: 
  Country: None (occurrence: None)
  Receive Date: 20050222
  Receipt Date: 20050222
  Transmission Date: 20050727
  Serious: Yes (Hospitalization)
  Sender: FDA-Public Use
  Company Number: None

PATIENT
  Sex: Female
  Weight: 75 kg

DRUGS (1)
  1. FLUOROURACIL [Suspect]
     Indication: PANCREATIC CARCINOMA

REACTIONS (3)
  - CATHETER RELATED COMPLICATION [None]
  - SUPERIOR VENA CAVAL OCCLUSION [None]
  - VENOOCCLUSIVE DISEASE [None]
